FAERS Safety Report 4698951-6 (Version None)
Quarter: 2005Q2

REPORT INFORMATION
  Report Type: 
  Country: None (occurrence: None)
  Receive Date: 20050624
  Receipt Date: 20050610
  Transmission Date: 20051028
  Serious: Yes (Hospitalization)
  Sender: FDA-Public Use
  Company Number: US-KINGPHARMUSA00001-K200500807

PATIENT
  Age: 75 Year
  Sex: Male
  Weight: 102 kg

DRUGS (14)
  1. SKELAXIN [Suspect]
     Indication: OSTEOARTHRITIS
     Dosage: 800 MG, BID
     Route: 048
     Dates: start: 20050101
  2. ALLOPURINOL [Concomitant]
     Indication: HYPERURICAEMIA
     Dosage: 300 MG, QD
     Route: 048
  3. PANTOPRAZOLE [Concomitant]
     Indication: PROPHYLAXIS
     Dosage: 40 MG, QD
     Route: 048
     Dates: start: 20050609
  4. VALSARTAN [Concomitant]
     Dosage: 160 MG, QD
     Route: 048
  5. ATORVASTATIN CALCIUM [Concomitant]
     Dosage: 40 MG, QD
     Route: 048
  6. FLUOXETINE [Concomitant]
     Dosage: 20 MG, QD
     Route: 048
  7. GLIMEPIRIDE [Concomitant]
     Indication: DIABETES MELLITUS
     Dosage: 4 MG, QAM
     Route: 048
  8. BISOPROLOL [Concomitant]
     Dosage: 2.5 MG, QD
     Route: 048
     Dates: end: 20050609
  9. INSULIN GLARGINE [Concomitant]
     Indication: DIABETES MELLITUS
     Dosage: 43 U, QD
     Route: 058
  10. BABYPRIN [Concomitant]
     Dosage: 81 MG, QD
     Route: 048
  11. FERROUS GLUCONATE [Concomitant]
     Dosage: 300 MG, QD
     Route: 048
     Dates: start: 20050609
  12. FUROSEMIDE [Concomitant]
     Dosage: 80 MG, QD
     Route: 048
     Dates: start: 20050609
  13. ARTANE [Concomitant]
     Indication: PARKINSON'S DISEASE
     Dosage: UNK, BID
     Route: 048
     Dates: end: 20050609
  14. BENICAR [Concomitant]
     Route: 048
     Dates: end: 20050609

REACTIONS (5)
  - BLOOD CREATININE INCREASED [None]
  - HYPERKALAEMIA [None]
  - HYPERPARATHYROIDISM [None]
  - NEPHROPATHY TOXIC [None]
  - RENAL FAILURE ACUTE [None]
